FAERS Safety Report 10336784 (Version 3)
Quarter: 2014Q3

REPORT INFORMATION
  Report Type: Spontaneous
  Country: US (occurrence: US)
  Receive Date: 20140723
  Receipt Date: 20140829
  Transmission Date: 20150326
  Serious: Yes (Hospitalization)
  Sender: FDA-Public Use
  Company Number: US-GLAXOSMITHKLINE-A1081963A

PATIENT
  Age: 72 Year
  Sex: Male

DRUGS (13)
  1. ADVAIR HFA [Suspect]
     Active Substance: FLUTICASONE PROPIONATE\SALMETEROL XINAFOATE
     Indication: ASTHMA
     Dosage: 1PUFF TWICE PER DAY
     Route: 055
     Dates: start: 2005
  2. XANAX [Concomitant]
     Active Substance: ALPRAZOLAM
  3. LOSARTAN [Concomitant]
     Active Substance: LOSARTAN
  4. LOVASTATIN. [Concomitant]
     Active Substance: LOVASTATIN
  5. VERAPAMIL HYDROCHLORIDE. [Concomitant]
     Active Substance: VERAPAMIL HYDROCHLORIDE
  6. PROAIR HFA [Concomitant]
     Active Substance: ALBUTEROL SULFATE
  7. THEOPHYLLINE CR [Concomitant]
     Active Substance: THEOPHYLLINE
  8. OMEPRAZOLE. [Concomitant]
     Active Substance: OMEPRAZOLE
  9. SPIRIVA [Concomitant]
     Active Substance: TIOTROPIUM BROMIDE MONOHYDRATE
  10. ALBUTEROL. [Concomitant]
     Active Substance: ALBUTEROL
  11. ECOTRIN [Concomitant]
     Active Substance: ASPIRIN
  12. UNSPECIFIED MEDICATIONS [Concomitant]
     Active Substance: UNSPECIFIED INGREDIENT
  13. ASPIRIN. [Concomitant]
     Active Substance: ASPIRIN

REACTIONS (5)
  - Chronic obstructive pulmonary disease [Not Recovered/Not Resolved]
  - Hypopnoea [Recovering/Resolving]
  - Dyspnoea [Recovering/Resolving]
  - Pneumonia [Unknown]
  - Insomnia [Recovering/Resolving]

NARRATIVE: CASE EVENT DATE: 2009
